FAERS Safety Report 4551208-6 (Version None)
Quarter: 2005Q1

REPORT INFORMATION
  Report Type: 
  Country: None (occurrence: None)
  Receive Date: 20050107
  Receipt Date: 20041230
  Transmission Date: 20050727
  Serious: Yes (Death, Hospitalization, Disabling, Other)
  Sender: FDA-Public Use
  Company Number: 2004005884

PATIENT
  Age: 55 Year
  Sex: Female

DRUGS (13)
  1. DILANTIN [Suspect]
     Indication: CONVULSION
     Dosage: 100 MG (Q8H), INTRAVENOUS
     Route: 042
     Dates: start: 20011227
  2. QUINAPRIL HCL [Suspect]
     Indication: HYPERTENSION
     Dosage: 20 MG (BID), ORAL
     Route: 048
     Dates: start: 20011231, end: 20020128
  3. CEREBYX [Suspect]
     Indication: CONVULSION
     Dates: start: 20020202
  4. CLONIDINE [Concomitant]
  5. IBUPROFEN [Concomitant]
  6. LORAZEPAM [Concomitant]
  7. NIFEDIPINE (NIFEDIPINE) [Concomitant]
  8. METOPROLOL TARTRATE [Concomitant]
  9. FAMOTIDIEN (FAMOTIDINE) [Concomitant]
  10. GABAPENTIN [Concomitant]
  11. PREDNISONE [Concomitant]
  12. CLOTRIMAZONE (CLOTRIMAZOLE) [Concomitant]
  13. NYSTATIN [Concomitant]

REACTIONS (26)
  - ANXIETY [None]
  - ASCITES [None]
  - ASTHENIA [None]
  - CATHETER RELATED INFECTION [None]
  - CHRONIC OBSTRUCTIVE AIRWAYS DISEASE EXACERBATED [None]
  - COAGULOPATHY [None]
  - DRUG HYPERSENSITIVITY [None]
  - FACE OEDEMA [None]
  - HAEMODIALYSIS [None]
  - IRON DEFICIENCY ANAEMIA [None]
  - JAUNDICE [None]
  - LETHARGY [None]
  - MEDICATION ERROR [None]
  - MENTAL STATUS CHANGES [None]
  - METABOLIC ACIDOSIS [None]
  - OLIGURIA [None]
  - PAIN [None]
  - PNEUMONIA [None]
  - RASH [None]
  - RASH SCALY [None]
  - RENAL FAILURE [None]
  - RESPIRATORY ALKALOSIS [None]
  - SPLEEN DISORDER [None]
  - STOMATITIS [None]
  - TONGUE COATED [None]
  - URINARY TRACT INFECTION [None]
